FAERS Safety Report 9668899 (Version 2)
Quarter: 2014Q1

REPORT INFORMATION
  Report Type: Report from Study
  Country: US (occurrence: US)
  Receive Date: 20131105
  Receipt Date: 20140131
  Transmission Date: 20141002
  Serious: Yes (Death)
  Sender: FDA-Public Use
  Company Number: PHEH2013US023042

PATIENT
  Sex: Male

DRUGS (11)
  1. ZOMETA [Suspect]
     Dosage: 4 MG/ 5ML
     Route: 041
  2. ASPIRIN [Concomitant]
     Dosage: UNK UKN, UNK
  3. CRESTOR [Concomitant]
     Dosage: UNK UKN, UNK
  4. EFEXOR XR [Concomitant]
     Dosage: UNK UKN, UNK
  5. PLAVIX [Concomitant]
     Dosage: UNK UKN, UNK
  6. LISINOPRIL [Concomitant]
     Dosage: UNK UKN, UNK
  7. LOPRESSOR [Concomitant]
     Dosage: UNK UKN, UNK
  8. GLUCOTROL [Concomitant]
     Dosage: UNK UKN, UNK
  9. NAPROSYN [Concomitant]
     Dosage: UNK UKN, UNK
  10. LORTAB [Concomitant]
     Dosage: UNK UKN, UNK
  11. TRELSTAR LA [Concomitant]
     Dosage: UNK UKN, UNK

REACTIONS (1)
  - Disease progression [Fatal]
